FAERS Safety Report 10449333 (Version 2)
Quarter: 2015Q1

REPORT INFORMATION
  Report Type: Spontaneous
  Country: CA (occurrence: CA)
  Receive Date: 20140912
  Receipt Date: 20150116
  Transmission Date: 20150720
  Serious: Yes (Other)
  Sender: FDA-Public Use
  Company Number: CA-JNJFOC-20140904396

PATIENT
  Age: 58 Year
  Sex: Female
  Weight: 143 kg

DRUGS (2)
  1. GALEXOS [Suspect]
     Active Substance: SIMEPREVIR
     Indication: HEPATITIS C
     Route: 048
     Dates: start: 201407, end: 201410
  2. SOVALDI [Suspect]
     Active Substance: SOFOSBUVIR
     Indication: HEPATITIS C
     Dosage: 400 (UNSPECIFIED UNITS) DAILY
     Route: 048
     Dates: start: 201407, end: 201410

REACTIONS (3)
  - Breast cancer recurrent [Not Recovered/Not Resolved]
  - Aortic valve repair [Unknown]
  - Off label use [Unknown]

NARRATIVE: CASE EVENT DATE: 20140811
